FAERS Safety Report 8359197-3 (Version None)
Quarter: 2012Q2

REPORT INFORMATION
  Report Type: 
  Country: None (occurrence: None)
  Receive Date: 20120511
  Receipt Date: 20120430
  Transmission Date: 20120825
  Serious: Yes (Hospitalization)
  Sender: FDA-Public Use
  Company Number: USA/USA/12/0024241

PATIENT
  Age: 22 Year
  Sex: Female

DRUGS (4)
  1. LEVETIRACETAM [Suspect]
     Indication: CONVULSION PROPHYLAXIS
  2. ACETAMINOPHEN [Concomitant]
  3. MORPHINE [Concomitant]
  4. PHENYTOIN [Suspect]
     Indication: CONVULSION

REACTIONS (6)
  - COAGULOPATHY [None]
  - LEUKOCYTOSIS [None]
  - HEPATITIS [None]
  - DRUG RASH WITH EOSINOPHILIA AND SYSTEMIC SYMPTOMS [None]
  - ANTICONVULSANT DRUG LEVEL INCREASED [None]
  - LIVER INJURY [None]
